FAERS Safety Report 23849591 (Version 1)
Quarter: 2024Q2

REPORT INFORMATION
  Report Type: Spontaneous
  Country: US (occurrence: None)
  Receive Date: 20240511
  Receipt Date: 20240511
  Transmission Date: 20240715
  Serious: Yes (Other)
  Sender: FDA-Public Use
  Company Number: None

PATIENT
  Age: 44 Year
  Sex: Male
  Weight: 135 kg

DRUGS (1)
  1. CABENUVA [Suspect]
     Active Substance: CABOTEGRAVIR\RILPIVIRINE
     Indication: HIV infection
     Dates: start: 20180507, end: 20240403

REACTIONS (3)
  - Injection site muscle atrophy [None]
  - Injection site atrophy [None]
  - Injection site granuloma [None]

NARRATIVE: CASE EVENT DATE: 20230401
